FAERS Safety Report 11314314 (Version 5)
Quarter: 2017Q1

REPORT INFORMATION
  Report Type: Report from Study
  Country: PH (occurrence: PH)
  Receive Date: 20150727
  Receipt Date: 20170307
  Transmission Date: 20170428
  Serious: Yes (Death, Hospitalization, Other)
  Sender: FDA-Public Use
  Company Number: PH-OTSUKA-2015_006186

PATIENT
  Age: 79 Year
  Sex: Male

DRUGS (4)
  1. THYRAX [Concomitant]
     Active Substance: LEVOTHYROXINE
     Indication: THYROID MASS
     Dosage: UNK
     Route: 065
     Dates: start: 20140527
  2. INSULIN [Concomitant]
     Active Substance: INSULIN NOS
     Indication: DIABETES MELLITUS
     Dosage: UNK
     Route: 065
     Dates: start: 2002
  3. ATORVASTATIN [Concomitant]
     Active Substance: ATORVASTATIN
     Indication: DYSLIPIDAEMIA
     Dosage: UNK
     Route: 065
     Dates: start: 20130805
  4. *ASPIRIN [Suspect]
     Active Substance: ASPIRIN
     Indication: CEREBRAL INFARCTION
     Dosage: 100 MG, QD
     Route: 048
     Dates: start: 20130807, end: 20140527

REACTIONS (3)
  - Cerebral infarction [Fatal]
  - Septic shock [Fatal]
  - Intestinal mass [Unknown]

NARRATIVE: CASE EVENT DATE: 20141012
